FAERS Safety Report 15703162 (Version 1)
Quarter: 2018Q4

REPORT INFORMATION
  Report Type: Spontaneous
  Country: US (occurrence: US)
  Receive Date: 20181208
  Receipt Date: 20181208
  Transmission Date: 20190205
  Serious: Yes (Other)
  Sender: FDA-Public Use
  Company Number: None

PATIENT
  Age: 67 Year
  Sex: Male

DRUGS (7)
  1. METOPROLOL 25MG TABLET [Concomitant]
     Active Substance: METOPROLOL
  2. JANTOVEN [Suspect]
     Active Substance: WARFARIN SODIUM
     Indication: ATRIAL FIBRILLATION
     Route: 048
     Dates: start: 20181015, end: 20181204
  3. LISINOPRIL 5MG TAB [Concomitant]
     Active Substance: LISINOPRIL
  4. TAMSULOSIN 0.4MG CAPSULES [Concomitant]
     Active Substance: TAMSULOSIN
  5. SIMVASTATIN 10MG TAB [Concomitant]
     Active Substance: SIMVASTATIN
  6. METFORMIN [Concomitant]
     Active Substance: METFORMIN HYDROCHLORIDE
  7. BASAGLAR 100U/ML [Concomitant]
     Active Substance: INSULIN GLARGINE

REACTIONS (1)
  - International normalised ratio abnormal [None]

NARRATIVE: CASE EVENT DATE: 20181204
